FAERS Safety Report 10206117 (Version 1)
Quarter: 2014Q2

REPORT INFORMATION
  Report Type: Spontaneous
  Country: IE (occurrence: None)
  Receive Date: 20140527
  Receipt Date: 20140527
  Transmission Date: 20141212
  Serious: Yes (Disabling)
  Sender: FDA-Public Use
  Company Number: None

PATIENT
  Age: 57 Year
  Sex: Female
  Weight: 36 kg

DRUGS (2)
  1. PROLIA [Suspect]
     Indication: OSTEOPOROSIS
     Dates: start: 20130814, end: 20140214
  2. PROLIA [Suspect]
     Dates: start: 20130814, end: 20140214

REACTIONS (10)
  - Headache [None]
  - Confusional state [None]
  - Back pain [None]
  - Musculoskeletal pain [None]
  - Pain in extremity [None]
  - Weight decreased [None]
  - Tooth extraction [None]
  - Gingival disorder [None]
  - Impaired healing [None]
  - Dizziness [None]
